FAERS Safety Report 16578210 (Version 1)
Quarter: 2019Q3

REPORT INFORMATION
  Report Type: Spontaneous
  Country: ES (occurrence: ES)
  Receive Date: 20190716
  Receipt Date: 20190716
  Transmission Date: 20191004
  Serious: Yes (Life-Threatening)
  Sender: FDA-Public Use
  Company Number: ES-SUN PHARMACEUTICAL INDUSTRIES LTD-2019RR-213465

PATIENT
  Age: 41 Year
  Sex: Female

DRUGS (5)
  1. PARACETAMOL [Suspect]
     Active Substance: ACETAMINOPHEN
     Indication: HEADACHE
     Dosage: ()
     Route: 048
     Dates: start: 20170417, end: 20170425
  2. DIAZEPAM. [Interacting]
     Active Substance: DIAZEPAM
     Indication: NECK PAIN
     Dosage: 5 MILLIGRAM, UNK
     Route: 048
     Dates: start: 20170423, end: 20170425
  3. METAMIZOL (NOLOTIL) [Interacting]
     Active Substance: METAMIZOLE
     Indication: HEADACHE
     Dosage: ()
     Route: 048
     Dates: start: 20170417, end: 20170425
  4. IBUPROFENO [Interacting]
     Active Substance: IBUPROFEN
     Indication: HEADACHE
     Dosage: ()
     Route: 048
     Dates: start: 20170417, end: 20170425
  5. NAPROXENO [Interacting]
     Active Substance: NAPROXEN
     Indication: HEADACHE
     Dosage: ()
     Route: 048
     Dates: start: 20170417, end: 20170425

REACTIONS (4)
  - Acute kidney injury [Recovered/Resolved]
  - Acute hepatic failure [Recovered/Resolved]
  - Drug reaction with eosinophilia and systemic symptoms [Recovered/Resolved]
  - Toxic skin eruption [Recovered/Resolved]

NARRATIVE: CASE EVENT DATE: 20170425
